FAERS Safety Report 9310276 (Version 1)
Quarter: 2013Q2

REPORT INFORMATION
  Report Type: Report from Study
  Country: KR (occurrence: KR)
  Receive Date: 20130527
  Receipt Date: 20130527
  Transmission Date: 20140414
  Serious: Yes (Hospitalization)
  Sender: FDA-Public Use
  Company Number: PHHY2013KR052138

PATIENT
  Sex: 0

DRUGS (3)
  1. AFINITOR [Suspect]
     Indication: RENAL CELL CARCINOMA
     Dosage: 10 MG, DAILY
     Dates: start: 20130213, end: 20130312
  2. AFINITOR [Suspect]
     Dosage: 10 MG, QD
     Dates: start: 20130320, end: 20130402
  3. AFINITOR [Suspect]
     Dosage: 10 MG, QD
     Route: 048
     Dates: start: 20130408, end: 20130416

REACTIONS (1)
  - No adverse event [Unknown]
